FAERS Safety Report 5525929-2 (Version None)
Quarter: 2007Q4

REPORT INFORMATION
  Report Type: 
  Country: None (occurrence: None)
  Receive Date: 20071126
  Receipt Date: 20071113
  Transmission Date: 20080405
  Serious: Yes (Hospitalization)
  Sender: FDA-Public Use
  Company Number: DE-SANOFI-SYNTHELABO-A04200701766

PATIENT
  Age: 27 Year
  Sex: Male

DRUGS (3)
  1. ZOLPIDEM TARTRATE [Suspect]
     Indication: INSOMNIA
     Dosage: 800 MG
     Route: 048
  2. ZOLPIDEM TARTRATE [Suspect]
     Dosage: 300 MG
     Route: 048
  3. CARBAMAZEPINE [Concomitant]
     Dosage: 900 MG

REACTIONS (6)
  - ABNORMAL BEHAVIOUR [None]
  - DRUG ABUSE [None]
  - DRUG DEPENDENCE [None]
  - DRUG WITHDRAWAL CONVULSIONS [None]
  - SPINAL FRACTURE [None]
  - WITHDRAWAL SYNDROME [None]
